FAERS Safety Report 16062524 (Version 1)
Quarter: 2019Q1

REPORT INFORMATION
  Report Type: Spontaneous
  Country: US (occurrence: US)
  Receive Date: 20190312
  Receipt Date: 20190312
  Transmission Date: 20190418
  Serious: No
  Sender: FDA-Public Use
  Company Number: US-SA-2019SA064882

PATIENT
  Age: 34 Year
  Sex: Male

DRUGS (1)
  1. LANTUS SOLOSTAR [Suspect]
     Active Substance: INSULIN GLARGINE
     Indication: TYPE 1 DIABETES MELLITUS
     Dosage: 30 AM /15 PM, BID
     Route: 065
     Dates: start: 201804

REACTIONS (2)
  - Inappropriate schedule of product administration [Unknown]
  - Product storage error [Unknown]
